FAERS Safety Report 10661811 (Version 1)
Quarter: 2014Q4

REPORT INFORMATION
  Report Type: Spontaneous
  Country: US (occurrence: None)
  Receive Date: 20141217
  Receipt Date: 20141217
  Transmission Date: 20150529
  Serious: No
  Sender: FDA-Public Use
  Company Number: None

PATIENT
  Age: 25 Year
  Sex: Female

DRUGS (14)
  1. DIGOXIN. [Concomitant]
     Active Substance: DIGOXIN
  2. ERGOCALCIFEROL. [Concomitant]
     Active Substance: ERGOCALCIFEROL
  3. DIPHENHYDRAMINE [Concomitant]
     Active Substance: DIPHENHYDRAMINE
  4. FOLIC ACID. [Concomitant]
     Active Substance: FOLIC ACID
  5. FUROSEMIDE. [Concomitant]
     Active Substance: FUROSEMIDE
  6. HEPARIN [Concomitant]
     Active Substance: HEPARIN SODIUM
  7. LEVOTHYROXINE [Concomitant]
     Active Substance: LEVOTHYROXINE
  8. INSULIN GLARGINE [Suspect]
     Active Substance: INSULIN GLARGINE
     Dosage: 4 UNITS, AT BEDTIME, SC
     Route: 058
  9. ACETAMINOPHEN. [Concomitant]
     Active Substance: ACETAMINOPHEN
  10. HYDRALAZINE [Concomitant]
     Active Substance: HYDRALAZINE HYDROCHLORIDE
  11. WARFARIN [Concomitant]
     Active Substance: WARFARIN
  12. GABAPENTIN. [Concomitant]
     Active Substance: GABAPENTIN
  13. INSULIN ASPART [Suspect]
     Active Substance: INSULIN ASPART
     Indication: HYPERGLYCAEMIA
     Dosage: 6 UNITS, PRN, SC
     Route: 058
  14. RAMIPRIL. [Concomitant]
     Active Substance: RAMIPRIL

REACTIONS (2)
  - Diabetic ketoacidosis [None]
  - Blood glucose fluctuation [None]

NARRATIVE: CASE EVENT DATE: 20141008
